FAERS Safety Report 13610652 (Version 3)
Quarter: 2017Q4

REPORT INFORMATION
  Report Type: Spontaneous
  Country: US (occurrence: US)
  Receive Date: 20170605
  Receipt Date: 20171220
  Transmission Date: 20180320
  Serious: Yes (Hospitalization, Other)
  Sender: FDA-Public Use
  Company Number: US-VIIV HEALTHCARE LIMITED-US2014GSK023612

PATIENT
  Age: 40 Year
  Sex: Male

DRUGS (10)
  1. TACROLIMUS. [Interacting]
     Active Substance: TACROLIMUS
     Indication: IMMUNOSUPPRESSION
     Dosage: 0.2 MG, WE
     Route: 065
  2. RITONAVIR. [Interacting]
     Active Substance: RITONAVIR
     Indication: ANTIRETROVIRAL THERAPY
     Dosage: 100 MG, QD
     Route: 065
     Dates: start: 1993
  3. LAMIVUDINE AND ZIDOVUDINE [Suspect]
     Active Substance: LAMIVUDINE\ZIDOVUDINE
     Indication: ANTIRETROVIRAL THERAPY
     Dosage: 450 MG, QD
     Route: 065
  4. LAMIVUDINE AND ZIDOVUDINE [Interacting]
     Active Substance: LAMIVUDINE\ZIDOVUDINE
     Dosage: IN THE EVENING
     Route: 065
     Dates: start: 1993
  5. ATAZANAVIR. [Interacting]
     Active Substance: ATAZANAVIR SULFATE
     Indication: HIV INFECTION
  6. LAMIVUDINE AND ZIDOVUDINE [Interacting]
     Active Substance: LAMIVUDINE\ZIDOVUDINE
     Indication: HIV INFECTION
     Dosage: IN THE MORNING
     Route: 065
     Dates: start: 1993
  7. PREDNISONE. [Suspect]
     Active Substance: PREDNISONE
     Indication: IMMUNOSUPPRESSION
     Dosage: 5 MG, QD
     Route: 065
  8. RITONAVIR. [Interacting]
     Active Substance: RITONAVIR
     Indication: HIV INFECTION
  9. CELLCEPT [Suspect]
     Active Substance: MYCOPHENOLATE MOFETIL\MYCOPHENOLATE MOFETIL HYDROCHLORIDE
     Indication: IMMUNOSUPPRESSION
     Dosage: 500 MG, BID
     Route: 065
  10. ATAZANAVIR. [Interacting]
     Active Substance: ATAZANAVIR SULFATE
     Indication: ANTIRETROVIRAL THERAPY
     Dosage: 300 MG, QD
     Route: 065
     Dates: start: 1993

REACTIONS (8)
  - Headache [Recovering/Resolving]
  - Malaise [Unknown]
  - Diarrhoea [Unknown]
  - Toxicity to various agents [Recovering/Resolving]
  - Drug administration error [Unknown]
  - Acute kidney injury [Recovering/Resolving]
  - Drug interaction [Unknown]
  - Product preparation error [Unknown]
